FAERS Safety Report 22600367 (Version 1)
Quarter: 2023Q2

REPORT INFORMATION
  Report Type: Spontaneous
  Country: US (occurrence: US)
  Receive Date: 20230614
  Receipt Date: 20230614
  Transmission Date: 20230722
  Serious: Yes (Other)
  Sender: FDA-Public Use
  Company Number: US-BAYER-2023A080037

PATIENT

DRUGS (2)
  1. ALEVE [Suspect]
     Active Substance: NAPROXEN SODIUM
  2. INLYTA [Concomitant]
     Active Substance: AXITINIB
     Dosage: 2 MG, BID

REACTIONS (2)
  - Shock [None]
  - Hypersensitivity [None]
